FAERS Safety Report 4952970-0 (Version None)
Quarter: 2006Q1

REPORT INFORMATION
  Report Type: 
  Country: None (occurrence: None)
  Receive Date: 20060324
  Receipt Date: 20060228
  Transmission Date: 20060701
  Serious: Yes (Death)
  Sender: FDA-Public Use
  Company Number: US-BRISTOL-MYERS SQUIBB COMPANY-13299037

PATIENT
  Age: 65 Year
  Sex: Male

DRUGS (1)
  1. PRAVACHOL [Suspect]
     Dates: start: 20041001

REACTIONS (2)
  - COMPLICATIONS OF TRANSPLANTED HEART [None]
  - LUNG NEOPLASM MALIGNANT [None]
